APPROVED DRUG PRODUCT: FLUTAMIDE
Active Ingredient: FLUTAMIDE
Strength: 125MG
Dosage Form/Route: CAPSULE;ORAL
Application: A075818 | Product #001
Applicant: CHARTWELL RX SCIENCES LLC
Approved: Sep 18, 2001 | RLD: No | RS: No | Type: DISCN